FAERS Safety Report 14799643 (Version 1)
Quarter: 2018Q2

REPORT INFORMATION
  Report Type: Spontaneous
  Country: ES (occurrence: ES)
  Receive Date: 20180424
  Receipt Date: 20180424
  Transmission Date: 20180711
  Serious: Yes (Hospitalization)
  Sender: FDA-Public Use
  Company Number: ES-LANNETT COMPANY, INC.-ES-2018LAN000640

PATIENT
  Age: 10 Year
  Sex: Male

DRUGS (1)
  1. DIPHENOXYLATE HCL; ATROPINE SULFATE [Suspect]
     Active Substance: ATROPINE SULFATE\DIPHENOXYLATE HYDROCHLORIDE
     Indication: INDUCTION OF ANAESTHESIA
     Dosage: 0.1 MG/KG, UNK
     Route: 042

REACTIONS (1)
  - Kounis syndrome [Unknown]
